FAERS Safety Report 4816793-5 (Version None)
Quarter: 2005Q4

REPORT INFORMATION
  Report Type: 
  Country: None (occurrence: None)
  Receive Date: 20051028
  Receipt Date: 20051012
  Transmission Date: 20060501
  Serious: Yes (Other)
  Sender: FDA-Public Use
  Company Number: 2004BL002763

PATIENT
  Age: 64 Year
  Sex: Female

DRUGS (2)
  1. RETISERT [Suspect]
     Indication: DIABETIC RETINAL OEDEMA
     Dosage: RIGHT EYE
     Dates: start: 20001214
  2. NORLOG 70/30 [Concomitant]

REACTIONS (7)
  - CAROTID ARTERY STENOSIS [None]
  - EYE DISORDER [None]
  - INTRAOCULAR PRESSURE INCREASED [None]
  - IRIS DISORDER [None]
  - ISCHAEMIA [None]
  - NEOVASCULARISATION [None]
  - VISUAL ACUITY REDUCED [None]
